FAERS Safety Report 5202997-9 (Version None)
Quarter: 2006Q4

REPORT INFORMATION
  Report Type: 
  Country: None (occurrence: None)
  Receive Date: 20061016
  Receipt Date: 20051031
  Transmission Date: 20070319
  Serious: Yes (Other)
  Sender: FDA-Public Use
  Company Number: 2005086767

PATIENT
  Age: 67 Year
  Sex: Female
  Weight: 90.7194 kg

DRUGS (6)
  1. NEURONTIN [Suspect]
     Indication: AUTONOMIC NERVOUS SYSTEM IMBALANCE
     Dosage: 100 MG (100 MG, 1 IN 1 D), ORAL
     Route: 048
     Dates: start: 20050301
  2. NEURONTIN [Suspect]
     Indication: MITRAL VALVE PROLAPSE
     Dosage: 100 MG (100 MG, 1 IN 1 D), ORAL
     Route: 048
     Dates: start: 20050301
  3. CARDIZEM [Concomitant]
  4. LIBRIUM [Concomitant]
  5. ACTYLSALICYLIC ACID (ACETYLSALICYLIC ACID) [Concomitant]
  6. SYNTHROID [Concomitant]

REACTIONS (4)
  - GLAUCOMA [None]
  - OPTIC NERVE DISORDER [None]
  - RETINAL DISORDER [None]
  - VISUAL ACUITY REDUCED [None]
